FAERS Safety Report 24390600 (Version 1)
Quarter: 2024Q4

REPORT INFORMATION
  Report Type: Report from Study
  Country: JP (occurrence: JP)
  Receive Date: 20241003
  Receipt Date: 20241003
  Transmission Date: 20250114
  Serious: Yes (Death, Other)
  Sender: ACCORD
  Company Number: JP-Accord-448975

PATIENT

DRUGS (3)
  1. CARBOPLATIN [Suspect]
     Active Substance: CARBOPLATIN
     Indication: Small cell lung cancer limited stage
     Dosage: AREA UNDER THE CURVE 3-5 ON DAY 1, EVERY 3-4 WEEKS
     Route: 042
  2. CISPLATIN [Suspect]
     Active Substance: CISPLATIN
     Indication: Small cell lung cancer limited stage
     Dosage: 60-80 MG/M2 ON DAY 1, EVERY 3-4 WEEKS
  3. ETOPOSIDE [Suspect]
     Active Substance: ETOPOSIDE
     Indication: Small cell lung cancer limited stage
     Dosage: (60-100 MG/M2) ON DAYS 1-3, REPEATED?EVERY 3-4 WEEKS

REACTIONS (1)
  - Pneumonitis [Fatal]
